FAERS Safety Report 20846684 (Version 4)
Quarter: 2022Q4

REPORT INFORMATION
  Report Type: Spontaneous
  Country: US (occurrence: US)
  Receive Date: 20220519
  Receipt Date: 20221104
  Transmission Date: 20230112
  Serious: Yes (Other)
  Sender: FDA-Public Use
  Company Number: US-BRISTOL-MYERS SQUIBB COMPANY-2022-025564

PATIENT
  Age: 70 Year
  Sex: Female

DRUGS (2)
  1. ABECMA [Suspect]
     Active Substance: IDECABTAGENE VICLEUCEL
     Indication: Plasma cell myeloma
     Route: 065
  2. ABECMA [Suspect]
     Active Substance: IDECABTAGENE VICLEUCEL

REACTIONS (4)
  - Parkinsonism [Unknown]
  - Cognitive disorder [Unknown]
  - Cytopenia [Unknown]
  - Cogwheel rigidity [Unknown]

NARRATIVE: CASE EVENT DATE: 20220101
